FAERS Safety Report 22518493 (Version 1)
Quarter: 2023Q2

REPORT INFORMATION
  Report Type: Spontaneous
  Country: CA (occurrence: CA)
  Receive Date: 20230605
  Receipt Date: 20230605
  Transmission Date: 20230721
  Serious: Yes (Disabling)
  Sender: FDA-Public Use
  Company Number: CA-AUROBINDO-AUR-APL-2023-040344

PATIENT
  Age: 45 Year
  Sex: Female
  Weight: 136 kg

DRUGS (2)
  1. DULOXETINE [Suspect]
     Active Substance: DULOXETINE
     Indication: Anxiolytic therapy
     Dosage: 60 MILLIGRAM, ONCE A DAY
     Route: 048
  2. DULOXETINE [Suspect]
     Active Substance: DULOXETINE
     Indication: Antidepressant therapy

REACTIONS (3)
  - Dizziness [Unknown]
  - Disorientation [Unknown]
  - Product substitution issue [Unknown]
